FAERS Safety Report 21907382 (Version 3)
Quarter: 2023Q1

REPORT INFORMATION
  Report Type: Report from Study
  Country: BR (occurrence: BR)
  Receive Date: 20230125
  Receipt Date: 20230208
  Transmission Date: 20230418
  Serious: Yes (Other)
  Sender: FDA-Public Use
  Company Number: BR-CELLTRION INC.-2023BR001830

PATIENT

DRUGS (3)
  1. INFLIXIMAB [Suspect]
     Active Substance: INFLIXIMAB
     Indication: Crohn^s disease
     Dosage: 1 AMPOULE EVERY 15 DAYS
     Route: 042
     Dates: start: 20230117
  2. PREDNISONE [Concomitant]
     Active Substance: PREDNISONE
     Indication: Crohn^s disease
     Dosage: 3 PILLS PER DAY
     Route: 048
  3. AZATHIOPRINE [Concomitant]
     Active Substance: AZATHIOPRINE

REACTIONS (8)
  - Haemorrhage [Recovered/Resolved]
  - Abdominal pain [Recovered/Resolved]
  - Secretion discharge [Recovered/Resolved]
  - Fatigue [Recovered/Resolved]
  - Diarrhoea [Recovered/Resolved]
  - Vomiting [Recovered/Resolved]
  - Pain [Unknown]
  - Treatment delayed [Unknown]

NARRATIVE: CASE EVENT DATE: 20230116
